FAERS Safety Report 9085773 (Version 1)
Quarter: 2013Q1

REPORT INFORMATION
  Report Type: Spontaneous
  Country: DE (occurrence: DE)
  Receive Date: 20130131
  Receipt Date: 20130131
  Transmission Date: 20140127
  Serious: Yes (Other)
  Sender: FDA-Public Use
  Company Number: DE-ROXANE LABORATORIES, INC.-2013-RO-00159RO

PATIENT
  Age: 85 Year
  Sex: Female

DRUGS (1)
  1. PREDNISONE [Suspect]
     Indication: TEMPORAL ARTERITIS
     Dosage: 10 MG

REACTIONS (4)
  - Condition aggravated [Unknown]
  - Steroid withdrawal syndrome [Unknown]
  - Panic disorder [Recovered/Resolved]
  - Osteoporosis [Unknown]
